FAERS Safety Report 6964628-7 (Version None)
Quarter: 2010Q3

REPORT INFORMATION
  Report Type: 
  Country: None (occurrence: None)
  Receive Date: 20100903
  Receipt Date: 20100823
  Transmission Date: 20110219
  Serious: Yes (Other)
  Sender: FDA-Public Use
  Company Number: US-PAR PHARMACEUTICAL, INC-2010SCPR001986

PATIENT

DRUGS (5)
  1. IBUPROFEN [Interacting]
     Indication: ARTHRALGIA
     Dosage: 600 MG, EVERY 8 HOURS AS NEEDED
     Route: 048
  2. NAPROXEN [Interacting]
     Indication: ARTHRALGIA
     Dosage: 375 MG, EVERY 8 HOURS AS NEEDED
     Route: 048
  3. FOSINOPRIL SODIUM [Suspect]
     Indication: HYPERTENSION
     Dosage: 40 MG, DAILY
     Route: 048
  4. ACETAMINOPHEN [Concomitant]
     Indication: ARTHRALGIA
     Dosage: 325 MG, UNK
  5. ACETAMINOPHEN [Concomitant]
     Dosage: 650 MG, EVERY 8 HOURS AS NEEDED
     Route: 065

REACTIONS (7)
  - DRUG INTERACTION [None]
  - ERYTHEMA [None]
  - EYE SWELLING [None]
  - FOREIGN BODY SENSATION IN EYES [None]
  - PAIN IN EXTREMITY [None]
  - PERIORBITAL OEDEMA [None]
  - PRURITUS [None]
